FAERS Safety Report 14842692 (Version 2)
Quarter: 2018Q2

REPORT INFORMATION
  Report Type: Spontaneous
  Country: CA (occurrence: CA)
  Receive Date: 20180503
  Receipt Date: 20180518
  Transmission Date: 20180711
  Serious: Yes (Other)
  Sender: FDA-Public Use
  Company Number: CA-CELLTRION INC.-2018CA017871

PATIENT

DRUGS (5)
  1. INFLECTRA [Suspect]
     Active Substance: INFLIXIMAB-DYYB
     Dosage: 250 MG EVERY 0, 2, 6WEEKS, THEN EVERY 8 WEEKS
     Route: 042
     Dates: start: 20180425
  2. PREDNISONE. [Concomitant]
     Active Substance: PREDNISONE
     Dosage: UNK
     Route: 065
     Dates: start: 20171215
  3. INFLECTRA [Suspect]
     Active Substance: INFLIXIMAB-DYYB
     Dosage: 250 MG, CYCLIC (0, 2, 6  WEEKS, THEN EVERY 8 WEEKS)
     Route: 042
     Dates: start: 20180131
  4. INFLECTRA [Suspect]
     Active Substance: INFLIXIMAB-DYYB
     Indication: COLITIS ULCERATIVE
     Dosage: 250 MG, CYCLIC (0, 2, 6  WEEKS, THEN EVERY 8 WEEKS)
     Route: 042
     Dates: start: 20180115
  5. INFLECTRA [Suspect]
     Active Substance: INFLIXIMAB-DYYB
     Dosage: 250 MG, CYCLIC (0, 2, 6  WEEKS, THEN EVERY 8 WEEKS)
     Route: 042
     Dates: start: 20180228

REACTIONS (3)
  - Clostridium difficile infection [Unknown]
  - Acne [Not Recovered/Not Resolved]
  - Drug effect incomplete [Unknown]
